FAERS Safety Report 8022045-5 (Version None)
Quarter: 2011Q4

REPORT INFORMATION
  Report Type: 
  Country: None (occurrence: None)
  Receive Date: 20111123
  Receipt Date: 20110927
  Transmission Date: 20120403
  Serious: No
  Sender: FDA-Public Use
  Company Number: 336153

PATIENT
  Sex: Female

DRUGS (5)
  1. JANUVIA [Suspect]
     Indication: DIABETES MELLITUS
  2. VICTOZA [Suspect]
     Indication: DIABETES MELLITUS
  3. LANTUS [Suspect]
     Indication: DIABETES MELLITUS
     Dosage: , SUBCUTANEOUS
     Route: 058
  4. LEVEMIR [Suspect]
     Indication: DIABETES MELLITUS
     Dosage: UNK, SUBCUTANEOUS
     Route: 058
     Dates: start: 20010101
  5. NOVOLOG [Suspect]
     Indication: DIABETES MELLITUS
     Dosage: UNK, SUBCUTANEOUS
     Route: 058
     Dates: start: 20010101

REACTIONS (2)
  - HYPERSENSITIVITY [None]
  - RASH [None]
